FAERS Safety Report 23103820 (Version 1)
Quarter: 2023Q4

REPORT INFORMATION
  Report Type: Report from Study
  Country: US (occurrence: US)
  Receive Date: 20231025
  Receipt Date: 20231025
  Transmission Date: 20240109
  Serious: Yes (Other)
  Sender: FDA-Public Use
  Company Number: US-ABBVIE-5459421

PATIENT
  Sex: Female

DRUGS (1)
  1. HUMIRA [Suspect]
     Active Substance: ADALIMUMAB
     Indication: Vogt-Koyanagi-Harada disease
     Dosage: FORM STRENGTH: 40MG
     Route: 058

REACTIONS (7)
  - Blindness [Unknown]
  - Tremor [Unknown]
  - Pain [Unknown]
  - Muscular weakness [Unknown]
  - Wrong technique in product usage process [Not Recovered/Not Resolved]
  - Drug hypersensitivity [Unknown]
  - Off label use [Not Recovered/Not Resolved]

NARRATIVE: CASE EVENT DATE: 20220101
